FAERS Safety Report 9846121 (Version 1)
Quarter: 2013Q4

REPORT INFORMATION
  Report Type: Spontaneous
  Country: US (occurrence: None)
  Receive Date: 20131223
  Receipt Date: 20131223
  Transmission Date: 20140711
  Serious: Yes (Hospitalization)
  Sender: FDA-Public Use
  Company Number: DSA_61586_2012

PATIENT
  Age: 38 Year
  Sex: Male

DRUGS (1)
  1. XENAZINE [Suspect]
     Indication: CHOREA
     Dosage: 75 MG, 3 IN 1 D, ORAL
     Route: 048
     Dates: start: 20100915, end: 20121203

REACTIONS (1)
  - Adverse reaction [None]
